FAERS Safety Report 4796161-5 (Version None)
Quarter: 2005Q4

REPORT INFORMATION
  Report Type: 
  Country: None (occurrence: None)
  Receive Date: 20051007
  Receipt Date: 20051004
  Transmission Date: 20060501
  Serious: Yes (Life-Threatening, Hospitalization, Other)
  Sender: FDA-Public Use
  Company Number: TPA2005A01167

PATIENT
  Age: 87 Year
  Sex: Female
  Weight: 56.6996 kg

DRUGS (7)
  1. ACTOS [Suspect]
     Indication: DIABETES MELLITUS NON-INSULIN-DEPENDENT
     Dosage: 15 MG, 1 IN 1 D, PER ORAL
     Route: 048
     Dates: start: 20050904, end: 20051004
  2. BACTRIM [Suspect]
     Indication: INFECTION
     Dosage: 2 IN 1 D, PER ORAL
     Route: 048
     Dates: start: 20050927, end: 20050929
  3. ACTONEL [Suspect]
  4. DOCUSATE (DOCUSATE) [Concomitant]
  5. ALENDRONATE (ALENDRONATE SODIUM) [Concomitant]
  6. OXYBUTYNIN CHLORIDE [Concomitant]
  7. PRILOSEC [Concomitant]

REACTIONS (8)
  - ANAEMIA [None]
  - ASTHENIA [None]
  - INFECTION [None]
  - MYELODYSPLASTIC SYNDROME [None]
  - PLATELET COUNT DECREASED [None]
  - RASH [None]
  - RED BLOOD CELL COUNT DECREASED [None]
  - WHITE BLOOD CELL COUNT DECREASED [None]
